FAERS Safety Report 16856417 (Version 1)
Quarter: 2019Q3

REPORT INFORMATION
  Report Type: Report from Study
  Country: US (occurrence: US)
  Receive Date: 20190926
  Receipt Date: 20190926
  Transmission Date: 20191005
  Serious: Yes (Death)
  Sender: FDA-Public Use
  Company Number: US-ASTRAZENECA-2019SF36424

PATIENT
  Sex: Male

DRUGS (9)
  1. DUONEB [Concomitant]
     Active Substance: ALBUTEROL SULFATE\IPRATROPIUM BROMIDE
  2. CALQUENCE [Suspect]
     Active Substance: ACALABRUTINIB
     Indication: MANTLE CELL LYMPHOMA
     Route: 048
     Dates: start: 20190801, end: 20190905
  3. LASIX [Concomitant]
     Active Substance: FUROSEMIDE
  4. VITAMIN B [Concomitant]
     Active Substance: VITAMIN B
  5. ZANTAC [Concomitant]
     Active Substance: RANITIDINE HYDROCHLORIDE
  6. CARDURA [Concomitant]
     Active Substance: DOXAZOSIN MESYLATE
  7. PRESERVISION [Concomitant]
     Active Substance: MINERALS\VITAMINS
  8. JEVITY [Concomitant]
     Active Substance: DIETARY SUPPLEMENT
  9. PROSCAR [Concomitant]
     Active Substance: FINASTERIDE

REACTIONS (1)
  - Death [Fatal]
